FAERS Safety Report 10672968 (Version 3)
Quarter: 2015Q1

REPORT INFORMATION
  Report Type: Report from Study
  Country: US (occurrence: US)
  Receive Date: 20141223
  Receipt Date: 20150203
  Transmission Date: 20150720
  Serious: Yes (Hospitalization)
  Sender: FDA-Public Use
  Company Number: US-ACTELION-A-US2014-109998

PATIENT
  Age: 54 Year
  Sex: Female
  Weight: 102 kg

DRUGS (6)
  1. OPSUMIT [Suspect]
     Active Substance: MACITENTAN
     Indication: PULMONARY ARTERIAL HYPERTENSION
     Dosage: 10 MG, QD
     Route: 048
     Dates: start: 20140813
  2. WARFARIN [Concomitant]
     Active Substance: WARFARIN
  3. ASPIRIN. [Concomitant]
     Active Substance: ASPIRIN
  4. VELETRI [Suspect]
     Active Substance: EPOPROSTENOL
     Indication: PULMONARY ARTERIAL HYPERTENSION
     Dosage: 7 NG/KG, PER MIN
     Route: 042
     Dates: start: 20141024
  5. SILDENAFIL. [Concomitant]
     Active Substance: SILDENAFIL
  6. OXYGEN. [Concomitant]
     Active Substance: OXYGEN

REACTIONS (4)
  - Neoplasm malignant [Unknown]
  - Biopsy [Unknown]
  - Plasma cell myeloma [Unknown]
  - Weight decreased [Unknown]
